FAERS Safety Report 4405206-3 (Version None)
Quarter: 2004Q3

REPORT INFORMATION
  Report Type: 
  Country: None (occurrence: None)
  Receive Date: 20040722
  Receipt Date: 20040722
  Transmission Date: 20050211
  Serious: Yes (Disabling)
  Sender: FDA-Public Use
  Company Number: None

PATIENT
  Sex: Female
  Weight: 77.1115 kg

DRUGS (7)
  1. FLONASE [Suspect]
     Indication: RHINITIS ALLERGIC
     Dosage: 2 SPRAYS NASAL/DAY
     Dates: start: 20020101
  2. FLONASE [Suspect]
     Indication: RHINITIS ALLERGIC
     Dosage: 2 SPRAYS NASAL/DAY
     Dates: start: 20040101
  3. SEREVENT [Concomitant]
  4. QVAR 40 [Concomitant]
  5. GLYBURIDE [Concomitant]
  6. LOVASTATIN [Concomitant]
  7. GLUCOPHAGE [Concomitant]

REACTIONS (1)
  - ANOSMIA [None]
